FAERS Safety Report 17430093 (Version 1)
Quarter: 2020Q1

REPORT INFORMATION
  Report Type: Spontaneous
  Country: US (occurrence: US)
  Receive Date: 20200218
  Receipt Date: 20200218
  Transmission Date: 20200409
  Serious: No
  Sender: FDA-Public Use
  Company Number: US-PFIZER INC-2020070341

PATIENT
  Age: 18 Year
  Sex: Male

DRUGS (3)
  1. PREDNISONE. [Concomitant]
     Active Substance: PREDNISONE
     Dosage: 5 MG, UNK
  2. XELJANZ [Suspect]
     Active Substance: TOFACITINIB CITRATE
     Indication: COLITIS ULCERATIVE
     Dosage: 10 MG, 2X/DAY
     Route: 048
     Dates: start: 20191030
  3. APRISO [Concomitant]
     Active Substance: MESALAMINE
     Dosage: 0.375 G, UNK ( 0.375G CAP.SR 24H)

REACTIONS (2)
  - Oropharyngeal pain [Unknown]
  - Somnolence [Unknown]
